FAERS Safety Report 15196588 (Version 3)
Quarter: 2018Q4

REPORT INFORMATION
  Report Type: Spontaneous
  Country: US (occurrence: US)
  Receive Date: 20180725
  Receipt Date: 20181016
  Transmission Date: 20190204
  Serious: No
  Sender: FDA-Public Use
  Company Number: US-SA-2018SA202024

PATIENT
  Age: 50 Year
  Sex: Female

DRUGS (8)
  1. MONTELUKAST [Concomitant]
     Active Substance: MONTELUKAST SODIUM
  2. NITROFURANTIN [Concomitant]
     Active Substance: NITROFURANTOIN
  3. DUPIXENT [Suspect]
     Active Substance: DUPILUMAB
     Indication: PSORIASIS
     Dosage: 300 MG, QOW
     Route: 058
     Dates: start: 20180516
  4. TACROLIMUS. [Concomitant]
     Active Substance: TACROLIMUS
  5. DUPIXENT [Suspect]
     Active Substance: DUPILUMAB
     Indication: PRURIGO
  6. HYDROXYZINE HCL [Concomitant]
     Active Substance: HYDROXYZINE HYDROCHLORIDE
  7. VENTOLIN HFA [Concomitant]
     Active Substance: ALBUTEROL SULFATE
  8. OLOPATADINE [OLOPATADINE HYDROCHLORIDE] [Concomitant]

REACTIONS (5)
  - Injection site eczema [Recovered/Resolved]
  - Oral herpes [Not Recovered/Not Resolved]
  - Product use in unapproved indication [Unknown]
  - Condition aggravated [Recovered/Resolved]
  - Skin exfoliation [Unknown]

NARRATIVE: CASE EVENT DATE: 20180516
